FAERS Safety Report 4752267-8 (Version None)
Quarter: 2005Q3

REPORT INFORMATION
  Report Type: 
  Country: None (occurrence: None)
  Receive Date: 20050824
  Receipt Date: 20050824
  Transmission Date: 20060218
  Serious: Yes (Hospitalization, Other)
  Sender: FDA-Public Use
  Company Number: None

PATIENT
  Sex: Male
  Weight: 112.9 kg

DRUGS (11)
  1. GEMCITABINE [Suspect]
     Indication: PANCREATIC CARCINOMA
     Dosage: SEE IMAGE
     Route: 042
     Dates: start: 20050815, end: 20050815
  2. GEMCITABINE [Suspect]
     Dosage: SEE IMAGE
     Route: 042
     Dates: start: 20050815, end: 20050815
  3. ACIPHEX [Concomitant]
  4. ALDACTONE [Concomitant]
  5. CARDIZEM [Concomitant]
  6. COUMADIN [Concomitant]
  7. INSULIN [Concomitant]
  8. LASIX [Concomitant]
  9. MEGASE [Concomitant]
  10. OMNICEF [Concomitant]
  11. ZANTAC [Concomitant]

REACTIONS (7)
  - ABDOMINAL DISTENSION [None]
  - CARDIAC FAILURE CONGESTIVE [None]
  - CELLULITIS [None]
  - CONDITION AGGRAVATED [None]
  - DIARRHOEA [None]
  - VENTRICULAR DYSFUNCTION [None]
  - WEIGHT INCREASED [None]
